FAERS Safety Report 26045663 (Version 1)
Quarter: 2025Q4

REPORT INFORMATION
  Report Type: Spontaneous
  Country: EU (occurrence: EU)
  Receive Date: 20251114
  Receipt Date: 20251114
  Transmission Date: 20260118
  Serious: Yes (Other)
  Sender: SUNOVION
  Company Number: EU-DSPHARMA-2025SPA015062

PATIENT

DRUGS (1)
  1. LURASIDONE HYDROCHLORIDE [Suspect]
     Active Substance: LURASIDONE HYDROCHLORIDE
     Indication: Schizophrenia
     Dosage: UNKNOWN

REACTIONS (1)
  - Dependence [Unknown]
